FAERS Safety Report 25328726 (Version 1)
Quarter: 2025Q2

REPORT INFORMATION
  Report Type: Spontaneous
  Country: US (occurrence: US)
  Receive Date: 20250519
  Receipt Date: 20250519
  Transmission Date: 20250717
  Serious: No
  Sender: SANOFI AVENTIS
  Company Number: US-SANOFI-02520277

PATIENT
  Sex: Male

DRUGS (2)
  1. DUPIXENT [Suspect]
     Active Substance: DUPILUMAB
     Indication: Dermatitis atopic
     Route: 065
  2. OTEZLA [Suspect]
     Active Substance: APREMILAST
     Route: 065

REACTIONS (3)
  - Psoriasis [Unknown]
  - Foreign body in eye [Unknown]
  - Blepharitis [Unknown]
